FAERS Safety Report 8439279-8 (Version None)
Quarter: 2012Q2

REPORT INFORMATION
  Report Type: 
  Country: None (occurrence: None)
  Receive Date: 20120607
  Receipt Date: 20120531
  Transmission Date: 20120825
  Serious: Yes (Hospitalization)
  Sender: FDA-Public Use
  Company Number: 2012SP019333

PATIENT
  Age: 60 Year
  Sex: Female
  Weight: 82.5547 kg

DRUGS (53)
  1. PLACEBO [Suspect]
     Indication: HEPATITIS C
     Dosage: 1 DF; 0 DF; 1 DF;
     Dates: start: 20120313, end: 20120313
  2. PLACEBO [Suspect]
     Indication: HEPATITIS C
     Dosage: 1 DF; 0 DF; 1 DF;
     Dates: start: 20111227, end: 20120312
  3. PLACEBO [Suspect]
     Indication: HEPATITIS C
     Dosage: 1 DF; 0 DF; 1 DF;
     Dates: start: 20120314, end: 20120320
  4. ATENOLOL [Concomitant]
  5. TRAMADOL HCL [Concomitant]
  6. BENADRYL [Concomitant]
  7. BOCEPREVIR [Suspect]
     Indication: HEPATITIS C
     Dosage: 800 MG;TID 8 DF 12 DF; 4 DF;
     Dates: start: 20120314, end: 20120409
  8. BOCEPREVIR [Suspect]
     Indication: HEPATITIS C
     Dosage: 800 MG;TID 8 DF 12 DF; 4 DF;
     Dates: start: 20120410, end: 20120410
  9. BOCEPREVIR [Suspect]
     Indication: HEPATITIS C
     Dosage: 800 MG;TID 8 DF 12 DF; 4 DF;
     Dates: start: 20120312, end: 20120312
  10. BOCEPREVIR [Suspect]
     Indication: HEPATITIS C
     Dosage: 800 MG;TID 8 DF 12 DF; 4 DF;
     Dates: start: 20120124, end: 20120124
  11. BOCEPREVIR [Suspect]
     Indication: HEPATITIS C
     Dosage: 800 MG;TID 8 DF 12 DF; 4 DF;
     Dates: start: 20120125, end: 20120204
  12. BOCEPREVIR [Suspect]
     Indication: HEPATITIS C
     Dosage: 800 MG;TID 8 DF 12 DF; 4 DF;
     Dates: start: 20120227, end: 20120311
  13. BOCEPREVIR [Suspect]
     Indication: HEPATITIS C
     Dosage: 800 MG;TID 8 DF 12 DF; 4 DF;
     Dates: start: 20120320, end: 20120410
  14. BOCEPREVIR [Suspect]
     Indication: HEPATITIS C
     Dosage: 800 MG;TID 8 DF 12 DF; 4 DF;
     Dates: start: 20120205, end: 20120205
  15. BOCEPREVIR [Suspect]
     Indication: HEPATITIS C
     Dosage: 800 MG;TID 8 DF 12 DF; 4 DF;
     Dates: start: 20120207, end: 20120220
  16. BOCEPREVIR [Suspect]
     Indication: HEPATITIS C
     Dosage: 800 MG;TID 8 DF 12 DF; 4 DF;
     Dates: start: 20120313, end: 20120313
  17. BOCEPREVIR [Suspect]
     Indication: HEPATITIS C
     Dosage: 800 MG;TID 8 DF 12 DF; 4 DF;
     Dates: start: 20120124, end: 20120319
  18. BOCEPREVIR [Suspect]
     Indication: HEPATITIS C
     Dosage: 800 MG;TID 8 DF 12 DF; 4 DF;
     Dates: start: 20120206, end: 20120206
  19. PEG-INTRON [Suspect]
     Indication: HEPATITIS C
     Dosage: 0.5 ML 0.3 ML
     Dates: start: 20120115, end: 20120115
  20. PEG-INTRON [Suspect]
     Indication: HEPATITIS C
     Dosage: 0.5 ML 0.3 ML
     Dates: start: 20120206, end: 20120206
  21. PEG-INTRON [Suspect]
     Indication: HEPATITIS C
     Dosage: 0.5 ML 0.3 ML
     Dates: start: 20120212, end: 20120212
  22. PEG-INTRON [Suspect]
     Indication: HEPATITIS C
     Dosage: 0.5 ML 0.3 ML
     Dates: start: 20120304, end: 20120304
  23. PEG-INTRON [Suspect]
     Indication: HEPATITIS C
     Dosage: 0.5 ML 0.3 ML
     Dates: start: 20120402, end: 20120402
  24. PEG-INTRON [Suspect]
     Indication: HEPATITIS C
     Dosage: 0.5 ML 0.3 ML
     Dates: start: 20120226, end: 20120226
  25. PEG-INTRON [Suspect]
     Indication: HEPATITIS C
     Dosage: 0.5 ML 0.3 ML
     Dates: start: 20120319, end: 20120319
  26. PEG-INTRON [Suspect]
     Indication: HEPATITIS C
     Dosage: 0.5 ML 0.3 ML
     Dates: start: 20120409, end: 20120409
  27. PEG-INTRON [Suspect]
     Indication: HEPATITIS C
     Dosage: 0.5 ML 0.3 ML
     Dates: start: 20111227, end: 20111227
  28. PEG-INTRON [Suspect]
     Indication: HEPATITIS C
     Dosage: 0.5 ML 0.3 ML
     Dates: start: 20120129, end: 20120129
  29. PEG-INTRON [Suspect]
     Indication: HEPATITIS C
     Dosage: 0.5 ML 0.3 ML
     Dates: start: 20120220, end: 20120220
  30. PEG-INTRON [Suspect]
     Indication: HEPATITIS C
     Dosage: 0.5 ML 0.3 ML
     Dates: start: 20120108, end: 20120108
  31. PEG-INTRON [Suspect]
     Indication: HEPATITIS C
     Dosage: 0.5 ML 0.3 ML
     Dates: start: 20120122, end: 20120122
  32. PEG-INTRON [Suspect]
     Indication: HEPATITIS C
     Dosage: 0.5 ML 0.3 ML
     Dates: start: 20120326, end: 20120409
  33. PEG-INTRON [Suspect]
     Indication: HEPATITIS C
     Dosage: 0.5 ML 0.3 ML
     Dates: start: 20120102, end: 20120102
  34. PEG-INTRON [Suspect]
     Indication: HEPATITIS C
     Dosage: 0.5 ML 0.3 ML
     Dates: start: 20120311, end: 20120311
  35. PEG-INTRON [Suspect]
     Indication: HEPATITIS C
     Dosage: 0.5 ML 0.3 ML
     Dates: start: 20120326, end: 20120326
  36. METAPROLOL [Concomitant]
  37. CIPROFLOXACIN HYDROCHLORIDE [Concomitant]
  38. RIBAVIRIN [Suspect]
     Indication: HEPATITIS C
     Dosage: 3 DF; 3 DF;QAM 3 DF;QPM 2 DF;QPM 2 DF;QAM
     Dates: start: 20120319, end: 20120410
  39. RIBAVIRIN [Suspect]
     Indication: HEPATITIS C
     Dosage: 3 DF; 3 DF;QAM 3 DF;QPM 2 DF;QPM 2 DF;QAM
     Dates: start: 20120314, end: 20120406
  40. RIBAVIRIN [Suspect]
     Indication: HEPATITIS C
     Dosage: 3 DF; 3 DF;QAM 3 DF;QPM 2 DF;QPM 2 DF;QAM
     Dates: start: 20120407, end: 20120409
  41. RIBAVIRIN [Suspect]
     Indication: HEPATITIS C
     Dosage: 3 DF; 3 DF;QAM 3 DF;QPM 2 DF;QPM 2 DF;QAM
     Dates: start: 20120205, end: 20120206
  42. RIBAVIRIN [Suspect]
     Indication: HEPATITIS C
     Dosage: 3 DF; 3 DF;QAM 3 DF;QPM 2 DF;QPM 2 DF;QAM
     Dates: start: 20120312, end: 20120313
  43. RIBAVIRIN [Suspect]
     Indication: HEPATITIS C
     Dosage: 3 DF; 3 DF;QAM 3 DF;QPM 2 DF;QPM 2 DF;QAM
     Dates: start: 20120326, end: 20120409
  44. RIBAVIRIN [Suspect]
     Indication: HEPATITIS C
     Dosage: 3 DF; 3 DF;QAM 3 DF;QPM 2 DF;QPM 2 DF;QAM
     Dates: start: 20120410, end: 20120410
  45. RIBAVIRIN [Suspect]
     Indication: HEPATITIS C
     Dosage: 3 DF; 3 DF;QAM 3 DF;QPM 2 DF;QPM 2 DF;QAM
     Dates: start: 20120207, end: 20120311
  46. RIBAVIRIN [Suspect]
     Indication: HEPATITIS C
     Dosage: 3 DF; 3 DF;QAM 3 DF;QPM 2 DF;QPM 2 DF;QAM
     Dates: start: 20111227, end: 20120204
  47. RIBAVIRIN [Suspect]
     Indication: HEPATITIS C
     Dosage: 3 DF; 3 DF;QAM 3 DF;QPM 2 DF;QPM 2 DF;QAM
     Dates: start: 20120207, end: 20120311
  48. RIBAVIRIN [Suspect]
     Indication: HEPATITIS C
     Dosage: 3 DF; 3 DF;QAM 3 DF;QPM 2 DF;QPM 2 DF;QAM
     Dates: start: 20120313, end: 20120313
  49. RIBAVIRIN [Suspect]
     Indication: HEPATITIS C
     Dosage: 3 DF; 3 DF;QAM 3 DF;QPM 2 DF;QPM 2 DF;QAM
     Dates: start: 20111227, end: 20111227
  50. RIBAVIRIN [Suspect]
     Indication: HEPATITIS C
     Dosage: 3 DF; 3 DF;QAM 3 DF;QPM 2 DF;QPM 2 DF;QAM
     Dates: start: 20111228, end: 20120312
  51. RIBAVIRIN [Suspect]
     Indication: HEPATITIS C
     Dosage: 3 DF; 3 DF;QAM 3 DF;QPM 2 DF;QPM 2 DF;QAM
     Dates: start: 20120314, end: 20120325
  52. IBUPROFEN (ADVIL) [Concomitant]
  53. PROMETHAZINE HYDROCHLORIDE [Concomitant]

REACTIONS (5)
  - PROTHROMBIN TIME PROLONGED [None]
  - ACTIVATED PARTIAL THROMBOPLASTIN TIME PROLONGED [None]
  - ATRIAL FIBRILLATION [None]
  - DIVERTICULITIS [None]
  - INTERNATIONAL NORMALISED RATIO DECREASED [None]
